FAERS Safety Report 13658125 (Version 1)
Quarter: 2017Q2

REPORT INFORMATION
  Report Type: Report from Study
  Country: US (occurrence: US)
  Receive Date: 20170616
  Receipt Date: 20170616
  Transmission Date: 20170830
  Serious: Yes (Death)
  Sender: FDA-Public Use
  Company Number: US-TORRENT-00003098

PATIENT
  Age: 53 Year
  Sex: Female

DRUGS (5)
  1. AMLODIPINE [Suspect]
     Active Substance: AMLODIPINE BESYLATE
  2. VENLAFAXINE [Suspect]
     Active Substance: VENLAFAXINE HYDROCHLORIDE
  3. BENAZEPRIL [Suspect]
     Active Substance: BENAZEPRIL HYDROCHLORIDE
  4. METOPROLOL. [Suspect]
     Active Substance: METOPROLOL
  5. ALCOHOL. [Suspect]
     Active Substance: ALCOHOL

REACTIONS (3)
  - Completed suicide [Fatal]
  - Intentional product misuse [None]
  - Toxicity to various agents [Fatal]
